FAERS Safety Report 4950187-7 (Version None)
Quarter: 2006Q1

REPORT INFORMATION
  Report Type: 
  Country: None (occurrence: None)
  Receive Date: 20060316
  Receipt Date: 20060306
  Transmission Date: 20060701
  Serious: Yes (Hospitalization)
  Sender: FDA-Public Use
  Company Number: 2006033948

PATIENT
  Age: 49 Year
  Sex: Female

DRUGS (2)
  1. ZOLOFT [Suspect]
     Indication: DEPRESSION
     Dosage: 150 MG (1 D), ORAL
     Route: 048
  2. INSULIN [Concomitant]

REACTIONS (3)
  - CONVULSION [None]
  - LOSS OF CONSCIOUSNESS [None]
  - VISUAL DISTURBANCE [None]
